FAERS Safety Report 19609436 (Version 1)
Quarter: 2021Q3

REPORT INFORMATION
  Report Type: Spontaneous
  Country: US (occurrence: US)
  Receive Date: 20210726
  Receipt Date: 20210726
  Transmission Date: 20211014
  Serious: Yes (Other)
  Sender: FDA-Public Use
  Company Number: None

PATIENT
  Age: 29 Year
  Sex: Female
  Weight: 92.25 kg

DRUGS (2)
  1. ESCITALOPRAM OXALATE. [Suspect]
     Active Substance: ESCITALOPRAM OXALATE
     Indication: POSTPARTUM ANXIETY
     Dosage: ?          QUANTITY:30 TABLET(S);?
     Route: 048
     Dates: start: 20200918, end: 20201023
  2. RAINBOW LIGHT PRENATAL TABLETS [Concomitant]

REACTIONS (10)
  - Discomfort [None]
  - Pain [None]
  - Weight decreased [None]
  - Insomnia [None]
  - Suicidal ideation [None]
  - Feeling abnormal [None]
  - Persistent genital arousal disorder [None]
  - Condition aggravated [None]
  - Decreased appetite [None]
  - Anorgasmia [None]

NARRATIVE: CASE EVENT DATE: 20200910
